FAERS Safety Report 6260284-4 (Version None)
Quarter: 2009Q3

REPORT INFORMATION
  Report Type: 
  Country: None (occurrence: None)
  Receive Date: 20090708
  Receipt Date: 20090707
  Transmission Date: 20100115
  Serious: Yes (Death, Other)
  Sender: FDA-Public Use
  Company Number: JP-B.I. PHARMACEUTICALS,INC./RIDGEFIELD-2009-BP-07617NB

PATIENT
  Age: 79 Year
  Sex: Female

DRUGS (18)
  1. MICARDIS [Suspect]
     Dosage: 40 MG
     Route: 048
     Dates: start: 20090602, end: 20090609
  2. PERDIPINE [Concomitant]
     Dosage: 20 MG
     Route: 048
     Dates: start: 20090602, end: 20090609
  3. URSO 250 [Concomitant]
     Dosage: 100 MG
     Route: 048
     Dates: start: 20090526, end: 20090609
  4. ARICEPT [Concomitant]
     Dosage: 5 MG
     Route: 048
     Dates: start: 20090526, end: 20090609
  5. NAUZELIN [Concomitant]
     Dosage: 30 MG
     Route: 054
     Dates: start: 20090603, end: 20090603
  6. MONILAC [Concomitant]
     Dosage: 6.5 MG
     Route: 048
     Dates: start: 20090603, end: 20090609
  7. ARGAMATE [Concomitant]
     Dosage: 25 G
     Route: 048
     Dates: start: 20090603, end: 20090609
  8. VANCOMYCIN [Concomitant]
     Dosage: 2 G
     Route: 042
     Dates: start: 20090605, end: 20090609
  9. ENTERONON-R [Concomitant]
     Dosage: 3 G
     Route: 048
     Dates: start: 20090605, end: 20090609
  10. KALIMATE [Concomitant]
     Dosage: 90 G
     Route: 048
     Dates: start: 20090608, end: 20090609
  11. TAKEPRON [Concomitant]
     Dosage: 15 MG
     Route: 048
     Dates: start: 20090607, end: 20090609
  12. CRAVIT [Concomitant]
     Route: 048
     Dates: start: 20090602, end: 20090607
  13. AMINOLEBAN [Concomitant]
     Dosage: 500 ML
     Route: 042
     Dates: start: 20090529, end: 20090608
  14. INNOLET- R [Concomitant]
     Route: 058
     Dates: start: 20090529, end: 20090609
  15. TIENAM [Concomitant]
     Dosage: 1 G
     Route: 042
     Dates: start: 20090604, end: 20090609
  16. VEEN-F [Concomitant]
     Dosage: 500 ML
     Route: 042
     Dates: start: 20090606, end: 20090607
  17. VITAMEDIN [Concomitant]
     Route: 042
     Dates: start: 20090606, end: 20090607
  18. LASIX [Concomitant]
     Route: 042
     Dates: start: 20090607, end: 20090609

REACTIONS (2)
  - BLOOD POTASSIUM INCREASED [None]
  - CHOLANGITIS [None]
